FAERS Safety Report 24932841 (Version 1)
Quarter: 2025Q1

REPORT INFORMATION
  Report Type: Spontaneous
  Country: IN (occurrence: IN)
  Receive Date: 20250205
  Receipt Date: 20250205
  Transmission Date: 20250409
  Serious: Yes (Hospitalization)
  Sender: STRIDES
  Company Number: IN-STRIDES ARCOLAB LIMITED-2025SP001563

PATIENT

DRUGS (1)
  1. METHOTREXATE [Suspect]
     Active Substance: METHOTREXATE
     Indication: Product used for unknown indication
     Route: 065

REACTIONS (2)
  - Hepatocellular injury [Recovered/Resolved]
  - Hepatitis acute [Recovered/Resolved]
